FAERS Safety Report 17240571 (Version 1)
Quarter: 2020Q1

REPORT INFORMATION
  Report Type: Spontaneous
  Country: DK (occurrence: DK)
  Receive Date: 20200107
  Receipt Date: 20200107
  Transmission Date: 20200409
  Serious: Yes (Hospitalization)
  Sender: FDA-Public Use
  Company Number: DK-TEVA-2020-DK-1163347

PATIENT
  Age: 67 Year
  Sex: Male

DRUGS (1)
  1. EMTHEXATE [Suspect]
     Active Substance: METHOTREXATE
     Indication: RHEUMATOID ARTHRITIS
     Dosage: 15 MG PER 1 WEEK
     Route: 048
     Dates: start: 20150930, end: 20190802

REACTIONS (5)
  - Weight decreased [Unknown]
  - Intervertebral discitis [Unknown]
  - General physical health deterioration [Unknown]
  - Tuberculosis [Recovering/Resolving]
  - Pleural effusion [Unknown]

NARRATIVE: CASE EVENT DATE: 201908
